FAERS Safety Report 7243745-0 (Version None)
Quarter: 2011Q1

REPORT INFORMATION
  Report Type: 
  Country: None (occurrence: None)
  Receive Date: 20110125
  Receipt Date: 20110119
  Transmission Date: 20110831
  Serious: No
  Sender: FDA-Public Use
  Company Number: US-PFIZER INC-2011014363

PATIENT
  Sex: Male
  Weight: 134 kg

DRUGS (5)
  1. METFORMIN [Concomitant]
     Dosage: 500 MG, 1X/DAY
  2. PREVACID [Concomitant]
     Dosage: 30 MG, 1X/DAY
  3. CELEBREX [Concomitant]
     Dosage: 200 MG, 1X/DAY
  4. ACTOS [Concomitant]
     Dosage: 15 MG, 1X/DAY
  5. CADUET [Suspect]
     Indication: BLOOD CHOLESTEROL INCREASED
     Dosage: 10/40MG DAILY
     Route: 048
     Dates: end: 20101201

REACTIONS (2)
  - PAIN IN EXTREMITY [None]
  - MUSCLE TIGHTNESS [None]
